FAERS Safety Report 6278288-4 (Version None)
Quarter: 2009Q3

REPORT INFORMATION
  Report Type: 
  Country: None (occurrence: None)
  Receive Date: 20090722
  Receipt Date: 20090716
  Transmission Date: 20100115
  Serious: Yes (Hospitalization)
  Sender: FDA-Public Use
  Company Number: IT-AVENTIS-200913133EU

PATIENT
  Age: 72 Year
  Sex: Female

DRUGS (5)
  1. LASIX [Suspect]
     Indication: CARDIOMYOPATHY
     Route: 048
     Dates: start: 20020101
  2. ALDACTONE [Suspect]
     Indication: CARDIOMYOPATHY
     Route: 048
     Dates: start: 20020101
  3. EUTIROX                            /00068001/ [Suspect]
     Indication: HYPOTHYROIDISM
     Route: 048
     Dates: start: 20020101
  4. LANOXIN [Suspect]
     Route: 048
     Dates: start: 20020101, end: 20090502
  5. CORTONE [Suspect]
     Indication: HYPOPITUITARISM
     Route: 048
     Dates: start: 20020101

REACTIONS (4)
  - ASTHENIA [None]
  - CONDITION AGGRAVATED [None]
  - NAUSEA [None]
  - VOMITING [None]
